FAERS Safety Report 8262036-2 (Version None)
Quarter: 2012Q2

REPORT INFORMATION
  Report Type: 
  Country: None (occurrence: None)
  Receive Date: 20120402
  Receipt Date: 20120317
  Transmission Date: 20120825
  Serious: Yes (Hospitalization)
  Sender: FDA-Public Use
  Company Number: 2012AP000378

PATIENT
  Age: 47 Year
  Sex: Female

DRUGS (1)
  1. CARBAMAZEPINE [Suspect]
     Indication: PRODUCT USED FOR UNKNOWN INDICATION

REACTIONS (6)
  - LYMPHOPENIA [None]
  - THROMBOCYTOSIS [None]
  - LEUKOPENIA [None]
  - TRANSAMINASES INCREASED [None]
  - TOXIC EPIDERMAL NECROLYSIS [None]
  - ANAEMIA [None]
